FAERS Safety Report 8300198-9 (Version None)
Quarter: 2012Q2

REPORT INFORMATION
  Report Type: 
  Country: None (occurrence: None)
  Receive Date: 20120420
  Receipt Date: 20120315
  Transmission Date: 20120825
  Serious: Yes (Hospitalization)
  Sender: FDA-Public Use
  Company Number: CA-JNJFOC-20120405759

PATIENT
  Sex: Female
  Weight: 75 kg

DRUGS (3)
  1. REMICADE [Suspect]
     Indication: COLITIS ULCERATIVE
     Dosage: 4 MAINTENANCE DOSES
     Route: 042
  2. PANTOPRAZOLE [Concomitant]
     Route: 065
  3. MESALAMINE [Concomitant]
     Route: 065

REACTIONS (3)
  - CHOLELITHIASIS [None]
  - LIVER DISORDER [None]
  - BILE DUCT OBSTRUCTION [None]
